FAERS Safety Report 7171205-4 (Version None)
Quarter: 2010Q4

REPORT INFORMATION
  Report Type: 
  Country: None (occurrence: None)
  Receive Date: 20101217
  Receipt Date: 20101206
  Transmission Date: 20110411
  Serious: Yes (Other)
  Sender: FDA-Public Use
  Company Number: BR-AMGEN-BRACT2010008871

PATIENT

DRUGS (3)
  1. ETANERCEPT [Suspect]
     Indication: RHEUMATOID ARTHRITIS
     Dosage: 50 MG, QWK
     Dates: start: 20090101, end: 20101101
  2. PREDNISONE [Concomitant]
  3. CALCIUM [Concomitant]

REACTIONS (4)
  - DEPRESSION [None]
  - DIARRHOEA [None]
  - VIRAL INFECTION [None]
  - WEIGHT DECREASED [None]
